FAERS Safety Report 9859129 (Version 3)
Quarter: 2014Q3

REPORT INFORMATION
  Report Type: Report from Study
  Country: RU (occurrence: RU)
  Receive Date: 20140131
  Receipt Date: 20140731
  Transmission Date: 20150326
  Serious: Yes (Hospitalization, Disabling, Other)
  Sender: FDA-Public Use
  Company Number: PHHY2014RU011843

PATIENT
  Age: 59 Year
  Sex: Female

DRUGS (1)
  1. ACLASTA [Suspect]
     Active Substance: ZOLEDRONIC ACID
     Indication: OSTEOPOROSIS
     Dosage: UNK
     Route: 042
     Dates: start: 20130726

REACTIONS (4)
  - Rib fracture [Recovered/Resolved]
  - Spinal fracture [Recovered/Resolved]
  - Lower limb fracture [Recovered/Resolved with Sequelae]
  - Hand fracture [Recovered/Resolved]

NARRATIVE: CASE EVENT DATE: 20140117
